FAERS Safety Report 6449196-0 (Version None)
Quarter: 2009Q4

REPORT INFORMATION
  Report Type: 
  Country: None (occurrence: None)
  Receive Date: 20091116
  Receipt Date: 20091103
  Transmission Date: 20100525
  Serious: Yes (Hospitalization)
  Sender: FDA-Public Use
  Company Number: 1000009937

PATIENT
  Age: 95 Year
  Sex: Female

DRUGS (9)
  1. NEBIVOLOL HCL [Suspect]
     Dosage: 1.25 MG (1.25 MG, 1 IN 1 D), ORAL
     Route: 048
     Dates: end: 20090227
  2. FUROSEMIDE [Suspect]
     Dosage: ORAL
     Route: 048
     Dates: end: 20090227
  3. NITRODERM [Suspect]
     Dosage: TOPICAL
     Route: 061
     Dates: end: 20090227
  4. ACETYLSALICYLATE LYSINE [Concomitant]
  5. PANTOPRAZOLE [Concomitant]
  6. DOLIPRANE [Concomitant]
  7. TRIMEBUTINE [Concomitant]
  8. FORLAX [Concomitant]
  9. PRPOFAN [Concomitant]

REACTIONS (2)
  - FALL [None]
  - HYPOTENSION [None]
